FAERS Safety Report 23284413 (Version 2)
Quarter: 2024Q1

REPORT INFORMATION
  Report Type: Spontaneous
  Country: US (occurrence: US)
  Receive Date: 20231211
  Receipt Date: 20240207
  Transmission Date: 20240409
  Serious: No
  Sender: FDA-Public Use
  Company Number: US-PFIZER INC-PV202300026840

PATIENT
  Age: 78 Year
  Sex: Female

DRUGS (2)
  1. IBRANCE [Suspect]
     Active Substance: PALBOCICLIB
     Indication: Breast cancer
     Dosage: 100 MG, CYCLIC (1-21 ON 28 DAY CYCLE)
     Route: 048
     Dates: start: 20220503
  2. FULVESTRANT [Concomitant]
     Active Substance: FULVESTRANT
     Dosage: 500 MG, CYCLIC, 1,15 + 29 F/B 500 MG Q28D X 12 CYCLES V6.0
     Dates: start: 20220503

REACTIONS (2)
  - Fatigue [Unknown]
  - Product dispensing error [Unknown]
